FAERS Safety Report 5593107-7 (Version None)
Quarter: 2008Q1

REPORT INFORMATION
  Report Type: 
  Country: None (occurrence: None)
  Receive Date: 20080114
  Receipt Date: 20080114
  Transmission Date: 20080703
  Serious: No
  Sender: FDA-Public Use
  Company Number: None

PATIENT
  Age: 64 Year
  Sex: Male
  Weight: 78 kg

DRUGS (1)
  1. HEPARIN [Suspect]
     Indication: THROMBOSIS PROPHYLAXIS
     Dosage: 5000IU BID SQ
     Route: 058
     Dates: start: 20071011, end: 20071115

REACTIONS (1)
  - HEPARIN-INDUCED THROMBOCYTOPENIA [None]
